FAERS Safety Report 4383631-7 (Version None)
Quarter: 2004Q2

REPORT INFORMATION
  Report Type: 
  Country: None (occurrence: None)
  Receive Date: 20040623
  Receipt Date: 20020306
  Transmission Date: 20050107
  Serious: Yes (Hospitalization)
  Sender: FDA-Public Use
  Company Number: PHBS2002JP03178

PATIENT
  Age: 35 Year
  Sex: Male
  Weight: 64 kg

DRUGS (4)
  1. VOLTAREN-XR [Suspect]
     Indication: ARTHRALGIA
     Dosage: 37.5 MG, BID
     Route: 048
     Dates: start: 20011223, end: 20020206
  2. SELBEX [Suspect]
     Indication: PROPHYLAXIS AGAINST GASTROINTESTINAL ULCER
     Dosage: .5 G, BID
     Route: 048
     Dates: start: 20011223, end: 20020206
  3. VOLTAREN [Suspect]
     Route: 061
  4. ADEFURONIC [Suspect]
     Indication: HYPERTHERMIA
     Route: 054
     Dates: start: 20020218, end: 20020218

REACTIONS (6)
  - DRUG ERUPTION [None]
  - ERYTHEMA [None]
  - PYREXIA [None]
  - RASH PAPULAR [None]
  - RASH PRURITIC [None]
  - VIRAL INFECTION [None]
